FAERS Safety Report 9992589 (Version 1)
Quarter: 2014Q1

REPORT INFORMATION
  Report Type: Spontaneous
  Country: US (occurrence: US)
  Receive Date: 20140310
  Receipt Date: 20140310
  Transmission Date: 20141002
  Serious: No
  Sender: FDA-Public Use
  Company Number: US-PFIZER INC-2014068607

PATIENT
  Age: 43 Year
  Sex: Female
  Weight: 98.41 kg

DRUGS (4)
  1. EFFEXOR XR [Suspect]
     Indication: ANXIETY
     Dosage: 150 MG, DAILY
     Dates: start: 2007
  2. EFFEXOR XR [Suspect]
     Indication: AFFECTIVE DISORDER
  3. LASIX [Concomitant]
     Indication: HYPERTENSION
     Dosage: 40 MG, DAILY
  4. HYDROCHLOROTHIAZIDE [Concomitant]
     Indication: HYPERTENSION
     Dosage: 25 MG, DAILY

REACTIONS (1)
  - Blood cholesterol abnormal [Unknown]
